FAERS Safety Report 6982821-4 (Version None)
Quarter: 2010Q3

REPORT INFORMATION
  Report Type: 
  Country: None (occurrence: None)
  Receive Date: 20100914
  Receipt Date: 20100415
  Transmission Date: 20110219
  Serious: No
  Sender: FDA-Public Use
  Company Number: US-PFIZER INC-2010048037

PATIENT
  Sex: Female
  Weight: 80 kg

DRUGS (19)
  1. LYRICA [Suspect]
     Indication: PERONEAL MUSCULAR ATROPHY
     Dosage: 150 MG, 1X/DAY
     Route: 048
     Dates: start: 20100203
  2. LYRICA [Suspect]
     Indication: NEUROMYOPATHY
  3. LYRICA [Suspect]
     Indication: NEUROPATHY PERIPHERAL
  4. FIBRE, DIETARY [Suspect]
     Indication: DIARRHOEA
  5. CYMBALTA [Concomitant]
     Indication: NEUROPATHY PERIPHERAL
     Dosage: 30 MG, 1X/DAY
     Route: 048
     Dates: start: 20100118
  6. ACTOS [Concomitant]
     Indication: GLUCOSE TOLERANCE IMPAIRED
     Dosage: 45 MG, 1X/DAY
     Route: 048
     Dates: start: 20070101
  7. NEXIUM [Concomitant]
     Indication: GASTROOESOPHAGEAL REFLUX DISEASE
     Dosage: 40 MG, DAILY
     Route: 048
     Dates: start: 20050101
  8. TRICOR [Concomitant]
     Indication: BLOOD TRIGLYCERIDES INCREASED
     Dosage: 145 MG, 1X/DAY
     Route: 048
     Dates: start: 20050101
  9. TRICOR [Concomitant]
     Indication: BLOOD CHOLESTEROL INCREASED
  10. CRESTOR [Concomitant]
     Indication: BLOOD TRIGLYCERIDES INCREASED
     Dosage: 20 MG, UNK
     Route: 048
     Dates: start: 20070101
  11. CRESTOR [Concomitant]
     Indication: BLOOD CHOLESTEROL INCREASED
  12. FISH OIL [Concomitant]
     Indication: BLOOD TRIGLYCERIDES INCREASED
     Dosage: UNK, DAILY
     Route: 048
  13. FISH OIL [Concomitant]
     Indication: BLOOD CHOLESTEROL INCREASED
  14. LASIX [Concomitant]
     Indication: HYPERTENSION
     Dosage: 20 MG, UNK
     Route: 048
     Dates: start: 20050101
  15. COREG [Concomitant]
     Indication: HYPERTENSION
     Dosage: 12.5 MG, 2X/DAY
     Route: 048
     Dates: start: 20070101
  16. LISINOPRIL [Concomitant]
     Indication: HYPERTENSION
     Dosage: 10 MG, DAILY
     Dates: start: 20100101
  17. FOLTX [Concomitant]
     Dosage: 2/2.5/25MG, 2X/DAY
     Route: 048
  18. CALTRATE + D [Concomitant]
     Dosage: 100/400 MG/I U, 2X/DAY
     Route: 048
  19. VITAMIN D [Concomitant]
     Dosage: 1000 IU, DAILY
     Route: 048

REACTIONS (2)
  - DIARRHOEA [None]
  - DRUG INEFFECTIVE [None]
